FAERS Safety Report 23886423 (Version 1)
Quarter: 2024Q2

REPORT INFORMATION
  Report Type: Spontaneous
  Country: US (occurrence: US)
  Receive Date: 20240522
  Receipt Date: 20240522
  Transmission Date: 20240716
  Serious: No
  Sender: FDA-Public Use
  Company Number: US-BRISTOL-MYERS SQUIBB COMPANY-2024-080211

PATIENT
  Age: 16 Year
  Sex: Male

DRUGS (1)
  1. ORENCIA [Suspect]
     Active Substance: ABATACEPT
     Indication: Morphoea
     Route: 058
     Dates: start: 202310

REACTIONS (3)
  - Rash [Not Recovered/Not Resolved]
  - Off label use [Unknown]
  - Sensitive skin [Unknown]
